FAERS Safety Report 8790176 (Version 1)
Quarter: 2012Q4

REPORT INFORMATION
  Report Type: 
  Country: JP (occurrence: JP)
  Receive Date: 20120914
  Receipt Date: 20120914
  Transmission Date: 20130627
  Serious: Yes (Other)
  Sender: FDA-Public Use
  Company Number: JP-ASTELLAS-2012JP008532

PATIENT
  Age: 55 Year
  Sex: Male

DRUGS (4)
  1. FUNGUARD [Suspect]
     Route: 041
  2. AVELOX [Concomitant]
     Route: 048
  3. VANCOMYCIN                         /00314402/ [Concomitant]
     Route: 065
  4. CIPROXAN /00697202/ [Concomitant]
     Route: 065

REACTIONS (1)
  - Blister [Unknown]
